FAERS Safety Report 17782423 (Version 1)
Quarter: 2020Q2

REPORT INFORMATION
  Report Type: Spontaneous
  Country: FR (occurrence: FR)
  Receive Date: 20200514
  Receipt Date: 20200514
  Transmission Date: 20200714
  Serious: Yes (Hospitalization)
  Sender: FDA-Public Use
  Company Number: FR-ACCORD-181960

PATIENT
  Age: 14 Year
  Sex: Female
  Weight: 90 kg

DRUGS (3)
  1. SERTRALINE [Suspect]
     Active Substance: SERTRALINE HYDROCHLORIDE
     Route: 048
     Dates: start: 20200403, end: 20200403
  2. PARACETAMOL [Suspect]
     Active Substance: ACETAMINOPHEN
     Route: 048
     Dates: start: 20200403, end: 20200403
  3. NOZINAN [Suspect]
     Active Substance: LEVOMEPROMAZINE
     Dates: start: 20200403, end: 20200403

REACTIONS (3)
  - Somnolence [Recovered/Resolved]
  - Hypotension [Recovered/Resolved]
  - Poisoning deliberate [Unknown]

NARRATIVE: CASE EVENT DATE: 20200403
